FAERS Safety Report 6456670-X (Version None)
Quarter: 2009Q4

REPORT INFORMATION
  Report Type: 
  Country: None (occurrence: None)
  Receive Date: 20091125
  Receipt Date: 20090306
  Transmission Date: 20100525
  Serious: No
  Sender: FDA-Public Use
  Company Number: A0772086A

PATIENT
  Age: 87 Year
  Sex: Female

DRUGS (6)
  1. LANOXIN [Suspect]
     Indication: ATRIAL FIBRILLATION
     Dosage: .19MG PER DAY
     Route: 048
     Dates: start: 19890101
  2. NITROGLYCERIN [Concomitant]
  3. ATENOLOL [Concomitant]
  4. AMLODIPINE [Concomitant]
  5. COZAAR [Concomitant]
  6. FUROSEMIDE [Concomitant]

REACTIONS (3)
  - DRUG ADMINISTRATION ERROR [None]
  - HEART RATE INCREASED [None]
  - INSOMNIA [None]
